FAERS Safety Report 9999097 (Version 1)
Quarter: 2014Q1

REPORT INFORMATION
  Report Type: Spontaneous
  Country: US (occurrence: None)
  Receive Date: 20140311
  Receipt Date: 20140311
  Transmission Date: 20141002
  Serious: Yes (Disabling, Other)
  Sender: FDA-Public Use
  Company Number: None

PATIENT
  Age: 53 Year
  Sex: Female
  Weight: 108.86 kg

DRUGS (1)
  1. OXYCODONE, 30 MG, CORACCO/CORACO [Suspect]
     Indication: PAIN
     Dosage: TAKEN BY MOUTH
     Dates: start: 20140224, end: 20140309

REACTIONS (2)
  - Drug ineffective [None]
  - Product substitution issue [None]
